FAERS Safety Report 13727655 (Version 1)
Quarter: 2017Q3

REPORT INFORMATION
  Report Type: Spontaneous
  Country: US (occurrence: US)
  Receive Date: 20170707
  Receipt Date: 20170707
  Transmission Date: 20171127
  Serious: No
  Sender: FDA-Public Use
  Company Number: US-PFIZER INC-2017292803

PATIENT
  Age: 65 Year
  Sex: Male
  Weight: 68.4 kg

DRUGS (1)
  1. ZOLOFT [Suspect]
     Active Substance: SERTRALINE HYDROCHLORIDE
     Indication: DEPRESSION
     Dosage: 100 MG, 1X/DAY(100MG TABLET ONCE IN THE EVENING)
     Dates: start: 2010

REACTIONS (1)
  - Somnolence [Unknown]
